FAERS Safety Report 17142734 (Version 1)
Quarter: 2019Q4

REPORT INFORMATION
  Report Type: Spontaneous
  Country: CN (occurrence: CN)
  Receive Date: 20191211
  Receipt Date: 20191211
  Transmission Date: 20200122
  Serious: Yes (Other)
  Sender: FDA-Public Use
  Company Number: CN-009507513-1912CHN003143

PATIENT
  Age: 69 Year
  Sex: Male
  Weight: 76 kg

DRUGS (14)
  1. AVASTIN [Suspect]
     Active Substance: BEVACIZUMAB
     Indication: IMMUNOCHEMOTHERAPY
  2. DEXTROSE. [Concomitant]
     Active Substance: DEXTROSE
     Indication: MEDICATION DILUTION
     Dosage: (SICHUAN KELUN) 500ML IV.DRIP D1
     Route: 041
     Dates: start: 20190903, end: 20190903
  3. DEXTROSE. [Concomitant]
     Active Substance: DEXTROSE
     Dosage: (SICHUAN KELUN) 500ML IV.DRIP D1
     Route: 041
     Dates: start: 20190903, end: 20190903
  4. LIPUSU [Suspect]
     Active Substance: PACLITAXEL
     Indication: IMMUNOCHEMOTHERAPY
  5. KEYTRUDA [Suspect]
     Active Substance: PEMBROLIZUMAB
     Indication: LUNG ADENOCARCINOMA STAGE IV
     Dosage: 200MG, Q3W
     Route: 042
     Dates: start: 20190903, end: 20190903
  6. CYCLOPHOSPHAMIDE (+) DOCETAXEL (+) EPIRUBICIN HYDROCHLORIDE (+) FLUORO [Suspect]
     Active Substance: CYCLOPHOSPHAMIDE\DOCETAXEL\EPIRUBICIN\FLUOROURACIL
     Indication: IMMUNOCHEMOTHERAPY
  7. CARBOPLATIN. [Suspect]
     Active Substance: CARBOPLATIN
     Indication: IMMUNOCHEMOTHERAPY
  8. SODIUM CHLORIDE. [Concomitant]
     Active Substance: SODIUM CHLORIDE
     Indication: MEDICATION DILUTION
     Dosage: (SICHUAN KELUN) 250ML IV.DRIP D1
     Route: 041
     Dates: start: 20190903, end: 20190903
  9. SODIUM CHLORIDE. [Concomitant]
     Active Substance: SODIUM CHLORIDE
     Dosage: (SICHUAN KELUN) 100ML IV.DRIP D1
     Route: 041
     Dates: start: 20190903, end: 20190903
  10. KEYTRUDA [Suspect]
     Active Substance: PEMBROLIZUMAB
     Indication: IMMUNOCHEMOTHERAPY
  11. AVASTIN [Suspect]
     Active Substance: BEVACIZUMAB
     Indication: LUNG ADENOCARCINOMA STAGE IV
     Dosage: 1000MG
     Dates: start: 20190903, end: 20190903
  12. CYCLOPHOSPHAMIDE (+) DOCETAXEL (+) EPIRUBICIN HYDROCHLORIDE (+) FLUORO [Suspect]
     Active Substance: CYCLOPHOSPHAMIDE\DOCETAXEL\EPIRUBICIN\FLUOROURACIL
     Indication: LUNG ADENOCARCINOMA STAGE IV
     Dosage: UNK
     Dates: start: 20190903, end: 20190903
  13. LIPUSU [Suspect]
     Active Substance: PACLITAXEL
     Indication: LUNG ADENOCARCINOMA STAGE IV
     Dosage: 300MG
     Dates: start: 20190903, end: 20190903
  14. CARBOPLATIN. [Suspect]
     Active Substance: CARBOPLATIN
     Indication: LUNG ADENOCARCINOMA STAGE IV
     Dosage: (BO BEI) (QILU) 500MG
     Dates: start: 20190903, end: 20190903

REACTIONS (4)
  - Neutrophil count decreased [Recovering/Resolving]
  - White blood cell count decreased [Recovering/Resolving]
  - Bone marrow failure [Recovering/Resolving]
  - Platelet count decreased [Recovering/Resolving]

NARRATIVE: CASE EVENT DATE: 20190909
